FAERS Safety Report 14424145 (Version 1)
Quarter: 2018Q1

REPORT INFORMATION
  Report Type: Spontaneous
  Country: GB (occurrence: GB)
  Receive Date: 20180123
  Receipt Date: 20180123
  Transmission Date: 20180509
  Serious: Yes (Hospitalization)
  Sender: FDA-Public Use
  Company Number: PHHY2018GB007079

PATIENT
  Age: 11 Year
  Sex: Male
  Weight: 48 kg

DRUGS (3)
  1. DEFLAZACORT [Concomitant]
     Active Substance: DEFLAZACORT
     Indication: PRODUCT USED FOR UNKNOWN INDICATION
     Route: 065
  2. ZOLEDRONIC ACID [Suspect]
     Active Substance: ZOLEDRONIC ACID
     Indication: SPINAL FRACTURE
     Route: 042
     Dates: start: 20171201, end: 20171201
  3. COLECALCIFEROL [Concomitant]
     Active Substance: CHOLECALCIFEROL
     Indication: PRODUCT USED FOR UNKNOWN INDICATION
     Route: 065

REACTIONS (9)
  - Muscle spasms [Unknown]
  - Malaise [Unknown]
  - Chromaturia [Unknown]
  - Tachycardia [Unknown]
  - Systemic inflammatory response syndrome [Recovered/Resolved]
  - Rhabdomyolysis [Recovering/Resolving]
  - Tachypnoea [Unknown]
  - Blood urine present [Unknown]
  - Pyrexia [Unknown]

NARRATIVE: CASE EVENT DATE: 20171202
